FAERS Safety Report 18403649 (Version 1)
Quarter: 2020Q4

REPORT INFORMATION
  Report Type: Spontaneous
  Country: US (occurrence: US)
  Receive Date: 20201020
  Receipt Date: 20201020
  Transmission Date: 20210114
  Serious: Yes (Disabling, Other)
  Sender: FDA-Public Use
  Company Number: None

PATIENT
  Sex: Female
  Weight: 90 kg

DRUGS (11)
  1. BOSWELLIA [Concomitant]
     Active Substance: DIETARY SUPPLEMENT\HERBALS
  2. MAGNESIUM [Concomitant]
     Active Substance: MAGNESIUM
  3. PRILOSEC [Concomitant]
     Active Substance: OMEPRAZOLE MAGNESIUM
  4. AMITRIPYLINE [Concomitant]
  5. ASHWANGDHA [Concomitant]
  6. MCT OIL [Concomitant]
  7. COENZYME Q10 [Concomitant]
     Active Substance: DIETARY SUPPLEMENT\UBIDECARENONE
  8. CURCUMIN [Concomitant]
     Active Substance: CURCUMIN
  9. RHODIOLA ROSEA [Concomitant]
     Active Substance: HERBALS
  10. VITAMIN B12 [Concomitant]
     Active Substance: CYANOCOBALAMIN
  11. NEURONTIN [Suspect]
     Active Substance: GABAPENTIN
     Indication: FIBROMYALGIA

REACTIONS (14)
  - Increased tendency to bruise [None]
  - Impaired healing [None]
  - Ligament disorder [None]
  - Coordination abnormal [None]
  - Condition aggravated [None]
  - Pain [None]
  - Paradoxical drug reaction [None]
  - Sleep disorder [None]
  - Limb injury [None]
  - Surgery [None]
  - Ligament sprain [None]
  - Bone disorder [None]
  - Injury [None]
  - Physical disability [None]
